FAERS Safety Report 26069952 (Version 1)
Quarter: 2025Q4

REPORT INFORMATION
  Report Type: Spontaneous
  Country: US (occurrence: US)
  Receive Date: 20251120
  Receipt Date: 20251120
  Transmission Date: 20260118
  Serious: No
  Sender: CATALYST PHARMA
  Company Number: US-CATALYST PHARMACEUTICALS-US-CATA-25-01535

PATIENT
  Sex: Male
  Weight: 20.798 kg

DRUGS (2)
  1. AGAMREE [Suspect]
     Active Substance: VAMOROLONE
     Indication: Duchenne muscular dystrophy
     Dosage: 2.8ML DAILY
     Route: 048
     Dates: start: 20240525
  2. AGAMREE [Suspect]
     Active Substance: VAMOROLONE
     Dosage: 3.1ML DAILY
     Route: 048
     Dates: start: 20250722

REACTIONS (1)
  - Constipation [Recovering/Resolving]

NARRATIVE: CASE EVENT DATE: 20250101
